FAERS Safety Report 21121051 (Version 2)
Quarter: 2022Q4

REPORT INFORMATION
  Report Type: Report from Study
  Country: US (occurrence: US)
  Receive Date: 20220722
  Receipt Date: 20221026
  Transmission Date: 20230113
  Serious: No
  Sender: FDA-Public Use
  Company Number: US-MIRM-000435

PATIENT
  Age: 6 Year
  Sex: Male

DRUGS (1)
  1. LIVMARLI [Suspect]
     Active Substance: MARALIXIBAT CHLORIDE
     Indication: Alagille syndrome
     Route: 048

REACTIONS (4)
  - Jaundice [Recovering/Resolving]
  - Pruritus [Recovering/Resolving]
  - COVID-19 [Recovering/Resolving]
  - Product quality issue [Unknown]
